FAERS Safety Report 16545223 (Version 1)
Quarter: 2019Q3

REPORT INFORMATION
  Report Type: Spontaneous
  Country: FR (occurrence: FR)
  Receive Date: 20190709
  Receipt Date: 20190709
  Transmission Date: 20191004
  Serious: Yes (Hospitalization, Other)
  Sender: FDA-Public Use
  Company Number: FR-MYLANLABS-2019M1062439

PATIENT
  Age: 83 Year

DRUGS (4)
  1. RAMIPRIL. [Concomitant]
     Active Substance: RAMIPRIL
     Indication: CARDIAC FAILURE
     Dosage: 1.25 MILLIGRAM, QD,1.25 MG, QD
     Route: 065
  2. DIGOXIN. [Suspect]
     Active Substance: DIGOXIN
     Indication: CARDIAC FAILURE
     Dosage: 0.25 MILLIGRAM, QD
     Route: 065
  3. BISOPROLOL [Suspect]
     Active Substance: BISOPROLOL
     Indication: CARDIAC FAILURE
     Dosage: 2.5 MILLIGRAM, QD,2.5 MG, QD
     Route: 065
  4. FUROSEMIDE. [Concomitant]
     Active Substance: FUROSEMIDE
     Indication: CARDIAC FAILURE
     Dosage: 40 MG, QD
     Route: 065

REACTIONS (9)
  - Bradycardia [Recovered/Resolved]
  - Hypotension [Recovered/Resolved]
  - Condition aggravated [Recovered/Resolved]
  - Gastrointestinal disorder [Recovered/Resolved]
  - Abdominal pain [Recovered/Resolved]
  - Oedema peripheral [Recovered/Resolved]
  - Vomiting [Recovered/Resolved]
  - Drug level increased [Recovered/Resolved]
  - Toxicity to various agents [Recovered/Resolved]
